FAERS Safety Report 10899175 (Version 1)
Quarter: 2015Q1

REPORT INFORMATION
  Report Type: Spontaneous
  Country: US (occurrence: US)
  Receive Date: 20150309
  Receipt Date: 20150309
  Transmission Date: 20150721
  Serious: Yes (Other)
  Sender: FDA-Public Use
  Company Number: US-BAYER-2015-033300

PATIENT
  Sex: Female

DRUGS (4)
  1. BETASERON [Suspect]
     Active Substance: INTERFERON BETA-1B
  2. AVONEX [Suspect]
     Active Substance: INTERFERON BETA-1A
  3. TYSABRI [Concomitant]
     Active Substance: NATALIZUMAB
  4. AMPYRA [Concomitant]
     Active Substance: DALFAMPRIDINE

REACTIONS (3)
  - Disease recurrence [None]
  - Injection site mass [None]
  - Gait disturbance [None]
